FAERS Safety Report 7643668-9 (Version None)
Quarter: 2011Q3

REPORT INFORMATION
  Report Type: 
  Country: None (occurrence: None)
  Receive Date: 20110729
  Receipt Date: 20110721
  Transmission Date: 20111222
  Serious: Yes (Hospitalization)
  Sender: FDA-Public Use
  Company Number: PHHY2011NL41346

PATIENT
  Sex: Female

DRUGS (3)
  1. ZOMETA [Suspect]
     Indication: METASTATIC NEOPLASM
     Dosage: 4 MG/ML, ONCE PER 28 DAYS
     Route: 042
     Dates: start: 20110120
  2. ZOMETA [Suspect]
     Dosage: 4 MG/ML, ONCE PER 28 DAYS
     Dates: start: 20110415
  3. ZOMETA [Suspect]
     Dosage: 4 MG/ML, ONCE PER 28 DAYS
     Dates: start: 20110621

REACTIONS (2)
  - EPILEPSY [None]
  - FALL [None]
